FAERS Safety Report 6715531-9 (Version None)
Quarter: 2010Q2

REPORT INFORMATION
  Report Type: 
  Country: None (occurrence: None)
  Receive Date: 20100507
  Receipt Date: 20100427
  Transmission Date: 20101027
  Serious: Yes (Death, Other)
  Sender: FDA-Public Use
  Company Number: US-PFIZER INC-2010032450

PATIENT
  Sex: Male
  Weight: 97.522 kg

DRUGS (1)
  1. VFEND [Suspect]
     Indication: PNEUMONIA FUNGAL
     Dosage: 200 MG, 2X/DAY
     Route: 048
     Dates: start: 20091223, end: 20100301

REACTIONS (2)
  - ARRHYTHMIA [None]
  - CARDIOMYOPATHY [None]
